FAERS Safety Report 20817239 (Version 1)
Quarter: 2022Q2

REPORT INFORMATION
  Report Type: Spontaneous
  Country: NL (occurrence: None)
  Receive Date: 20220512
  Receipt Date: 20220512
  Transmission Date: 20220721
  Serious: Yes (Hospitalization, Other)
  Sender: FDA-Public Use
  Company Number: NL-VistaPharm, Inc.-VER202205-000430

PATIENT
  Age: 68 Year
  Sex: Male

DRUGS (4)
  1. OXYCODONE [Suspect]
     Active Substance: OXYCODONE
     Indication: Back pain
     Dosage: 90 TABLETS (10 MG)
     Route: 065
  2. METHYLNALTREXONE [Concomitant]
     Active Substance: METHYLNALTREXONE
     Indication: Constipation
     Dosage: UNKNOWN
     Route: 065
  3. METHYLNALTREXONE [Concomitant]
     Active Substance: METHYLNALTREXONE
     Indication: Ileus paralytic
  4. METHYLNALTREXONE [Concomitant]
     Active Substance: METHYLNALTREXONE
     Indication: Prophylaxis

REACTIONS (4)
  - Poisoning [Unknown]
  - Bezoar [Unknown]
  - Hypoventilation [Unknown]
  - Depressed level of consciousness [Recovering/Resolving]
